FAERS Safety Report 4903352-9 (Version None)
Quarter: 2006Q1

REPORT INFORMATION
  Report Type: 
  Country: None (occurrence: None)
  Receive Date: 20060206
  Receipt Date: 20060206
  Transmission Date: 20060701
  Serious: Yes (Other)
  Sender: FDA-Public Use
  Company Number: None

PATIENT
  Age: 63 Year
  Sex: Female
  Weight: 89.3 kg

DRUGS (1)
  1. TAXOL [Suspect]
     Indication: OVARIAN CANCER
     Dosage: 338 (TITRATED RATE)
     Dates: start: 20051008

REACTIONS (2)
  - BACK PAIN [None]
  - FEELING HOT [None]
